FAERS Safety Report 8962151 (Version 2)
Quarter: 2013Q3

REPORT INFORMATION
  Report Type: Spontaneous
  Country: US (occurrence: US)
  Receive Date: 20121212
  Receipt Date: 20130715
  Transmission Date: 20140515
  Serious: No
  Sender: FDA-Public Use
  Company Number: US-PFIZER INC-2012311480

PATIENT
  Age: 55 Year
  Sex: Female

DRUGS (9)
  1. LYRICA [Suspect]
     Dosage: UNK UG, 1X/DAY
  2. NORVASC [Suspect]
     Dosage: 10 MG, 1X/DAY
  3. SPIRIVA [Suspect]
     Dosage: 18 UG, 1X/DAY
  4. LEVOXYL [Concomitant]
     Dosage: 200 UG, 1X/DAY
  5. TYLENOL [Concomitant]
     Dosage: 4000 MG, 1X/DAY
  6. TOPROL [Concomitant]
     Dosage: 25 MG, UNK
  7. SYNTHROID [Concomitant]
     Dosage: 0.2 MG, UNK
  8. MOTRIN [Concomitant]
     Dosage: 4000 MG, 1X/DAY
  9. CRESTOR [Concomitant]
     Dosage: 20 MG, UNK

REACTIONS (5)
  - Arthralgia [Unknown]
  - Paraesthesia [Unknown]
  - Hypoaesthesia [Unknown]
  - Pain [Unknown]
  - Intentional drug misuse [Unknown]
